FAERS Safety Report 10162506 (Version 1)
Quarter: 2014Q2

REPORT INFORMATION
  Report Type: Spontaneous
  Country: GB (occurrence: GB)
  Receive Date: 20140509
  Receipt Date: 20140509
  Transmission Date: 20141212
  Serious: Yes (Other)
  Sender: FDA-Public Use
  Company Number: GB-PFIZER INC-2014124051

PATIENT
  Sex: 0

DRUGS (9)
  1. MORPHINE SULFATE [Suspect]
     Indication: ANAESTHESIA
     Dosage: 10 MG, UNK
     Route: 064
  2. CO-AMOXICLAV [Suspect]
     Indication: ANAESTHESIA
     Dosage: 1.2 G, UNK
     Route: 064
  3. ROCURONIUM BROMIDE [Suspect]
     Indication: ANAESTHESIA
     Dosage: 40 MG, UNK
     Route: 064
  4. PARACETAMOL [Suspect]
     Indication: ANAESTHESIA
     Dosage: 1 G, UNK
     Route: 064
  5. SUXAMETHONIUM [Suspect]
     Indication: ANAESTHESIA
     Dosage: 100 MG, UNK
     Route: 064
  6. ENOXAPARIN [Suspect]
     Indication: PULMONARY EMBOLISM
     Dosage: 1 MG/KG, 2X/DAY(80 MG)
     Route: 064
  7. ENOXAPARIN [Suspect]
     Dosage: 80 MG
  8. THIOPENTAL [Suspect]
     Indication: ANAESTHESIA
     Dosage: 500 MG, UNK
     Route: 064
  9. ALFENTANIL [Suspect]
     Indication: ANAESTHESIA
     Dosage: 1 MG, UNK
     Route: 064

REACTIONS (3)
  - Exposure during pregnancy [Unknown]
  - Apgar score low [Unknown]
  - Premature baby [Recovered/Resolved]
